FAERS Safety Report 13567371 (Version 1)
Quarter: 2017Q2

REPORT INFORMATION
  Report Type: Spontaneous
  Country: RS (occurrence: RS)
  Receive Date: 20170522
  Receipt Date: 20170522
  Transmission Date: 20170830
  Serious: Yes (Hospitalization, Other)
  Sender: FDA-Public Use
  Company Number: RS-ABBVIE-17K-303-1974841-00

PATIENT
  Age: 22 Year
  Sex: Female

DRUGS (20)
  1. HUMIRA [Suspect]
     Active Substance: ADALIMUMAB
     Indication: PSORIATIC ARTHROPATHY
     Route: 058
     Dates: start: 201205, end: 201301
  2. CONTROLOC [Concomitant]
     Active Substance: PANTOPRAZOLE SODIUM
     Indication: PRODUCT USED FOR UNKNOWN INDICATION
  3. NYSTATIN. [Concomitant]
     Active Substance: NYSTATIN
     Indication: PRODUCT USED FOR UNKNOWN INDICATION
     Dosage: 2X1
  4. NEOTIGASON [Concomitant]
     Active Substance: ACITRETIN
     Dates: start: 2014, end: 201407
  5. NEOTIGASON [Concomitant]
     Active Substance: ACITRETIN
     Indication: PSORIATIC ARTHROPATHY
     Dates: start: 201304, end: 2013
  6. ETANERCEPT [Suspect]
     Active Substance: ETANERCEPT
     Indication: PSORIATIC ARTHROPATHY
     Route: 065
     Dates: start: 200705, end: 200806
  7. PRONISON [Concomitant]
     Active Substance: PREDNISONE
     Indication: PRODUCT USED FOR UNKNOWN INDICATION
     Dosage: GRADUAL DOSE REDUCTION UNTIL DISCONTINUATION
     Dates: start: 2005, end: 2005
  8. METOTREXATE [Concomitant]
     Active Substance: METHOTREXATE SODIUM
     Indication: PRODUCT USED FOR UNKNOWN INDICATION
     Dates: start: 20130310, end: 201304
  9. METOTREXATE [Concomitant]
     Active Substance: METHOTREXATE SODIUM
  10. METOTREXATE [Concomitant]
     Active Substance: METHOTREXATE SODIUM
  11. PRONISON [Concomitant]
     Active Substance: PREDNISONE
  12. METOTREXATE [Concomitant]
     Active Substance: METHOTREXATE SODIUM
     Dates: start: 2014, end: 2014
  13. PRONISON [Concomitant]
     Active Substance: PREDNISONE
  14. PRONISON [Concomitant]
     Active Substance: PREDNISONE
  15. NEOTIGASON [Concomitant]
     Active Substance: ACITRETIN
     Dates: start: 2013, end: 2013
  16. ETANERCEPT [Suspect]
     Active Substance: ETANERCEPT
     Route: 065
     Dates: start: 201301, end: 201303
  17. METOTREXATE [Concomitant]
     Active Substance: METHOTREXATE SODIUM
     Dates: start: 201407
  18. ETANERCEPT [Suspect]
     Active Substance: ETANERCEPT
     Route: 065
     Dates: start: 200811, end: 201202
  19. STELARA [Concomitant]
     Active Substance: USTEKINUMAB
     Indication: PRODUCT USED FOR UNKNOWN INDICATION
     Dates: end: 2014
  20. HEFEROL [Concomitant]
     Active Substance: FERROUS FUMARATE
     Indication: PRODUCT USED FOR UNKNOWN INDICATION
     Dosage: 2X1

REACTIONS (20)
  - Dactylitis [Unknown]
  - Mastitis [Unknown]
  - Urinary tract infection [Recovered/Resolved]
  - Anaemia [Unknown]
  - Joint swelling [Unknown]
  - Joint contracture [Unknown]
  - Joint swelling [Unknown]
  - Nail pitting [Unknown]
  - Erythrodermic psoriasis [Unknown]
  - Arthralgia [Unknown]
  - Dermatitis exfoliative [Unknown]
  - Staphylococcal infection [Recovered/Resolved]
  - Pneumonia [Unknown]
  - Psoriasis [Unknown]
  - Drug ineffective [Unknown]
  - Ear infection [Unknown]
  - Otitis externa [Unknown]
  - Proteinuria [Unknown]
  - Skin haemorrhage [Unknown]
  - Acinetobacter test positive [Unknown]

NARRATIVE: CASE EVENT DATE: 201205
